FAERS Safety Report 20645770 (Version 1)
Quarter: 2022Q1

REPORT INFORMATION
  Report Type: Report from Study
  Country: TR (occurrence: TR)
  Receive Date: 20220328
  Receipt Date: 20220328
  Transmission Date: 20220423
  Serious: Yes (Death, Life-Threatening, Hospitalization)
  Sender: FDA-Public Use
  Company Number: TR-AMGEN INC.-TURCT2021134002

PATIENT
  Age: 52 Year
  Sex: Female
  Weight: 82 kg

DRUGS (16)
  1. CARFILZOMIB [Suspect]
     Active Substance: CARFILZOMIB
     Indication: Plasma cell myeloma
     Dosage: 106 MILLIGRAM, PER CHEMO REGIM
     Route: 042
     Dates: start: 20210419
  2. DEXAMETHASONE [Suspect]
     Active Substance: DEXAMETHASONE
     Indication: Plasma cell myeloma
     Dosage: 6-40 MILLIGRAM
     Route: 065
     Dates: start: 20210419, end: 20210830
  3. LENALIDOMIDE [Suspect]
     Active Substance: LENALIDOMIDE
     Indication: Plasma cell myeloma
     Dosage: 25 MILLIGRAM
     Route: 065
     Dates: start: 20210419
  4. PANTO [PANTOPRAZOLE SODIUM SESQUIHYDRATE] [Concomitant]
     Active Substance: PANTOPRAZOLE SODIUM
     Dosage: 40 MILLIGRAM
     Route: 048
     Dates: start: 2013, end: 20210912
  5. SEROQUEL [Concomitant]
     Active Substance: QUETIAPINE FUMARATE
     Dosage: 100 MILLIGRAM
     Route: 048
     Dates: start: 2018, end: 20210912
  6. PAMIDRIA [Concomitant]
     Dosage: 90 MILLIGRAM
     Dates: start: 20210416, end: 20210912
  7. ASPIRIN [Concomitant]
     Active Substance: ASPIRIN
     Dosage: 100 MILLIGRAM
     Dates: start: 20210416, end: 20210912
  8. ACIKLOVIR [Concomitant]
     Dosage: 800 MILLIGRAM
     Dates: start: 20210416, end: 20210912
  9. ALLOPURINOL [Concomitant]
     Active Substance: ALLOPURINOL
     Dosage: 150 MILLIGRAM
     Dates: start: 20210416, end: 20210912
  10. BACTRIM [Concomitant]
     Active Substance: SULFAMETHOXAZOLE\TRIMETHOPRIM
     Dosage: 800 MILLIGRAM
     Dates: start: 20210416, end: 20210912
  11. DEVASID [SULTAMICILLIN] [Concomitant]
     Dosage: 1 GRAM
     Route: 042
     Dates: start: 20210810, end: 20210817
  12. DIOSMIN [Concomitant]
     Active Substance: DIOSMIN
     Dosage: 500 MILLIGRAM
     Route: 048
     Dates: start: 20210811, end: 20210912
  13. AUGMENTIN [Concomitant]
     Active Substance: AMOXICILLIN\CLAVULANATE POTASSIUM
     Dosage: 1000 MILLIGRAM
     Route: 048
     Dates: start: 20210819, end: 20210912
  14. CIPRO [Concomitant]
     Active Substance: CIPROFLOXACIN HYDROCHLORIDE
     Dosage: 500 MILLIGRAM
     Route: 048
     Dates: start: 20210819, end: 20210825
  15. OKSAPAR [Concomitant]
     Dosage: 6000-8000 INTERNATIONAL UNIT
     Route: 058
     Dates: start: 20210714, end: 20210912
  16. AMOXICILLIN\CLAVULANATE POTASSIUM [Concomitant]
     Active Substance: AMOXICILLIN\CLAVULANATE POTASSIUM
     Dosage: 1000 MILLIGRAM
     Route: 048
     Dates: start: 20210819, end: 20210825

REACTIONS (2)
  - COVID-19 pneumonia [Recovered/Resolved]
  - Septic shock [Fatal]

NARRATIVE: CASE EVENT DATE: 20210828
